FAERS Safety Report 5508677-4 (Version None)
Quarter: 2007Q4

REPORT INFORMATION
  Report Type: 
  Country: None (occurrence: None)
  Receive Date: 20071107
  Receipt Date: 20071031
  Transmission Date: 20080405
  Serious: Yes (Hospitalization)
  Sender: FDA-Public Use
  Company Number: FR-AVENTIS-200715135EU

PATIENT
  Age: 66 Year
  Sex: Female

DRUGS (6)
  1. INDAPAMIDE [Suspect]
     Route: 048
     Dates: end: 20070518
  2. TEGRETOL [Suspect]
     Route: 048
     Dates: start: 19920101, end: 20070518
  3. CLONAZEPAM [Suspect]
     Route: 048
     Dates: start: 20040101, end: 20070517
  4. SOTALOL HCL [Concomitant]
     Dosage: DOSE: UNK
  5. NICARDIPINE HCL [Concomitant]
     Dosage: DOSE: UNK
  6. XALATAN [Concomitant]
     Dosage: DOSE: UNK

REACTIONS (2)
  - ALTERED STATE OF CONSCIOUSNESS [None]
  - HYPONATRAEMIA [None]
